FAERS Safety Report 12676086 (Version 4)
Quarter: 2016Q4

REPORT INFORMATION
  Report Type: Report from Study
  Country: IN (occurrence: IN)
  Receive Date: 20160823
  Receipt Date: 20161006
  Transmission Date: 20170207
  Serious: Yes (Other)
  Sender: FDA-Public Use
  Company Number: PHHY2016IN111987

PATIENT
  Age: 36 Year
  Sex: Female

DRUGS (3)
  1. SCAPHO [Suspect]
     Active Substance: SECUKINUMAB
     Dosage: 150 MG, 4TH DOSE
     Route: 058
     Dates: start: 20160830, end: 20160830
  2. SCAPHO [Suspect]
     Active Substance: SECUKINUMAB
     Dosage: 150 MG, 3RD DOSE
     Route: 058
     Dates: start: 20160823, end: 20160830
  3. SCAPHO [Suspect]
     Active Substance: SECUKINUMAB
     Indication: PSORIASIS
     Dosage: 300 MG, UNK
     Route: 058
     Dates: start: 20160805

REACTIONS (4)
  - Swelling face [Not Recovered/Not Resolved]
  - Dyspnoea [Recovered/Resolved]
  - Discomfort [Unknown]
  - Incorrect dose administered [Unknown]

NARRATIVE: CASE EVENT DATE: 20160806
